FAERS Safety Report 5291511-8 (Version None)
Quarter: 2007Q2

REPORT INFORMATION
  Report Type: 
  Country: None (occurrence: None)
  Receive Date: 20070403
  Receipt Date: 20070319
  Transmission Date: 20071010
  Serious: Yes (Hospitalization)
  Sender: FDA-Public Use
  Company Number: US019666

PATIENT
  Age: 71 Year
  Sex: Female
  Weight: 72.7 kg

DRUGS (2)
  1. PROVIGIL [Suspect]
     Indication: FATIGUE
     Dosage: 100 MG QD ORAL
     Route: 048
     Dates: end: 20070301
  2. LEXAPRO [Concomitant]

REACTIONS (4)
  - BLOOD ELECTROLYTES ABNORMAL [None]
  - BLOOD SODIUM DECREASED [None]
  - MALAISE [None]
  - VOMITING [None]
